FAERS Safety Report 5737642-7 (Version None)
Quarter: 2008Q2

REPORT INFORMATION
  Report Type: 
  Country: None (occurrence: None)
  Receive Date: 20080512
  Receipt Date: 20080512
  Transmission Date: 20081010
  Serious: Yes (Life-Threatening, Other)
  Sender: FDA-Public Use
  Company Number: None

PATIENT
  Age: 62 Year
  Sex: Female
  Weight: 72.5755 kg

DRUGS (5)
  1. DIGITEK    .125 [Suspect]
     Indication: CARDIAC DISORDER
     Dosage: .125  DAILY  PO
     Route: 048
     Dates: start: 20070507, end: 20080507
  2. DIGITEK    .125 [Suspect]
     Indication: CARDIAC FAILURE CONGESTIVE
     Dosage: .125  DAILY  PO
     Route: 048
     Dates: start: 20070507, end: 20080507
  3. IMDUR [Concomitant]
  4. BOSOLPROLOL FUMERATE [Concomitant]
  5. PROCARDIA [Concomitant]

REACTIONS (5)
  - ANXIETY [None]
  - ARRHYTHMIA [None]
  - DYSPNOEA [None]
  - PALPITATIONS [None]
  - SYNCOPE [None]
